FAERS Safety Report 5029593-0 (Version None)
Quarter: 2006Q2

REPORT INFORMATION
  Report Type: 
  Country: None (occurrence: None)
  Receive Date: 20060504
  Receipt Date: 20060109
  Transmission Date: 20061013
  Serious: No
  Sender: FDA-Public Use
  Company Number: 200512114BWH

PATIENT
  Sex: Male

DRUGS (3)
  1. LEVITRA [Suspect]
     Indication: ERECTILE DYSFUNCTION
     Dosage: 10 MG, ONCE, ORAL
     Route: 048
     Dates: start: 20051003
  2. LISINOPRIL [Concomitant]
  3. UROXATRAL [Concomitant]

REACTIONS (2)
  - DYSPEPSIA [None]
  - SPONTANEOUS PENILE ERECTION [None]
